FAERS Safety Report 4309987-9 (Version None)
Quarter: 2004Q1

REPORT INFORMATION
  Report Type: 
  Country: None (occurrence: None)
  Receive Date: 20040301
  Receipt Date: 20031210
  Transmission Date: 20041129
  Serious: Yes (Disabling)
  Sender: FDA-Public Use
  Company Number: WAES 0312USA01117

PATIENT
  Sex: Female
  Weight: 63.05 kg

DRUGS (2)
  1. ZETIA [Suspect]
     Dosage: PO
     Route: 048
     Dates: start: 20030702, end: 20031126
  2. SYNTHROID [Concomitant]

REACTIONS (1)
  - MYALGIA [None]
